FAERS Safety Report 5776615-5 (Version None)
Quarter: 2008Q2

REPORT INFORMATION
  Report Type: 
  Country: None (occurrence: None)
  Receive Date: 20080618
  Receipt Date: 20080519
  Transmission Date: 20081010
  Serious: No
  Sender: FDA-Public Use
  Company Number: US-ASTRAZENECA-2007UW27294

PATIENT
  Age: 61 Year
  Sex: Male
  Weight: 99.8 kg

DRUGS (4)
  1. SYMBICORT [Suspect]
     Indication: INFLAMMATION
     Dosage: 2 X (160/4.5 UG) BID
     Route: 055
     Dates: start: 20070101
  2. SYMBICORT [Suspect]
     Indication: RESPIRATORY DISORDER
     Dosage: 2 X (160/4.5 UG) BID
     Route: 055
     Dates: start: 20070101
  3. METFORMIN [Concomitant]
  4. XALATAN [Concomitant]

REACTIONS (4)
  - BLOOD PRESSURE INCREASED [None]
  - DIZZINESS [None]
  - NERVOUSNESS [None]
  - THROAT IRRITATION [None]
